FAERS Safety Report 20522990 (Version 1)
Quarter: 2022Q1

REPORT INFORMATION
  Report Type: Other
  Country: CA (occurrence: CA)
  Receive Date: 20220227
  Receipt Date: 20220227
  Transmission Date: 20220423
  Serious: Yes (Other)
  Sender: FDA-Public Use
  Company Number: CA-GLENMARK PHARMACEUTICALS-2022GMK070829

PATIENT

DRUGS (10)
  1. TOPIRAMATE [Suspect]
     Active Substance: TOPIRAMATE
     Indication: Infantile spasms
     Dosage: UNK
     Route: 065
  2. CANNABIDIOL [Suspect]
     Active Substance: CANNABIDIOL
     Indication: Seizure
     Dosage: UNK
     Route: 065
  3. CLONAZEPAM [Suspect]
     Active Substance: CLONAZEPAM
     Indication: Seizure
     Dosage: UNK
     Route: 065
  4. LEVETIRACETAM [Suspect]
     Active Substance: LEVETIRACETAM
     Indication: Seizure
     Dosage: UNK
     Route: 065
  5. PHENOBARBITAL [Suspect]
     Active Substance: PHENOBARBITAL
     Indication: Seizure
     Dosage: UNK
     Route: 065
  6. PREDNISOLONE [Suspect]
     Active Substance: PREDNISOLONE
     Indication: Infantile spasms
     Dosage: 20 MILLIGRAM, TID
     Route: 065
  7. DIVALPROEX SODIUM [Suspect]
     Active Substance: DIVALPROEX SODIUM
     Indication: Seizure
     Dosage: UNK
     Route: 065
  8. VIGABATRIN [Concomitant]
     Active Substance: VIGABATRIN
     Indication: Product used for unknown indication
     Dosage: UNK
     Route: 065
  9. VIGABATRIN [Concomitant]
     Active Substance: VIGABATRIN
     Dosage: UNK
     Route: 065
  10. VITAMIN B6 [Concomitant]
     Active Substance: PYRIDOXINE HYDROCHLORIDE
     Indication: Product used for unknown indication
     Dosage: UNK
     Route: 065

REACTIONS (3)
  - Multiple-drug resistance [Unknown]
  - Seizure [Unknown]
  - Product use in unapproved indication [Unknown]
